FAERS Safety Report 5775994-2 (Version None)
Quarter: 2008Q2

REPORT INFORMATION
  Report Type: 
  Country: None (occurrence: None)
  Receive Date: 20080613
  Receipt Date: 20080604
  Transmission Date: 20081010
  Serious: No
  Sender: FDA-Public Use
  Company Number: 20085229

PATIENT
  Age: 55 Year
  Sex: Male

DRUGS (1)
  1. LIORESAL [Suspect]
     Indication: MUSCLE SPASTICITY
     Dosage: MCG, DAILY, INTRATHECAL
     Route: 037

REACTIONS (5)
  - CONDITION AGGRAVATED [None]
  - FATIGUE [None]
  - INCONTINENCE [None]
  - MICTURITION URGENCY [None]
  - URINARY TRACT INFECTION [None]
